FAERS Safety Report 9420265 (Version 1)
Quarter: 2013Q3

REPORT INFORMATION
  Report Type: Spontaneous
  Country: US (occurrence: US)
  Receive Date: 20130725
  Receipt Date: 20130725
  Transmission Date: 20140515
  Serious: No
  Sender: FDA-Public Use
  Company Number: US-PFIZER INC-2013214928

PATIENT
  Age: 61 Year
  Sex: Female
  Weight: 70.3 kg

DRUGS (6)
  1. CHANTIX [Suspect]
     Indication: SMOKING CESSATION THERAPY
     Dosage: UNK
     Dates: start: 200911
  2. PAROXETINE [Concomitant]
     Indication: STRESS
     Dosage: 20 MG, DAILY
  3. FENOFIBRATE [Concomitant]
     Dosage: 150 MG, DAILY
  4. LOVASTATIN [Concomitant]
     Dosage: 20 MG, DAILY
  5. RAMIPRIL [Concomitant]
     Dosage: 10 MG, DAILY
  6. ATENOLOL [Concomitant]
     Dosage: 50 MG, DAILY

REACTIONS (1)
  - Nausea [Recovered/Resolved]
